FAERS Safety Report 7463142-2 (Version None)
Quarter: 2011Q2

REPORT INFORMATION
  Report Type: 
  Country: None (occurrence: None)
  Receive Date: 20110506
  Receipt Date: 20110503
  Transmission Date: 20111010
  Serious: Yes (Hospitalization, Disabling, Other)
  Sender: FDA-Public Use
  Company Number: US-PFIZER INC-2011032292

PATIENT
  Sex: Male

DRUGS (4)
  1. PRILOSEC [Concomitant]
     Indication: DYSPEPSIA
     Dosage: UNK
     Dates: start: 20080101
  2. IBUPROFEN [Concomitant]
     Indication: PAIN
     Dosage: UNK
     Dates: start: 20000101
  3. PRILOSEC [Concomitant]
     Indication: GASTROOESOPHAGEAL REFLUX DISEASE
  4. CHANTIX [Suspect]
     Indication: SMOKING CESSATION THERAPY
     Dosage: 0.5 MG, 1 MG
     Dates: start: 20090414, end: 20090528

REACTIONS (10)
  - IRRITABILITY [None]
  - AGGRESSION [None]
  - PSYCHOTIC DISORDER [None]
  - PANIC ATTACK [None]
  - AMNESIA [None]
  - BIPOLAR DISORDER [None]
  - ANXIETY [None]
  - SOMNAMBULISM [None]
  - NIGHTMARE [None]
  - ANGER [None]
